FAERS Safety Report 17964236 (Version 2)
Quarter: 2020Q3

REPORT INFORMATION
  Report Type: Spontaneous
  Country: US (occurrence: US)
  Receive Date: 20200630
  Receipt Date: 20200709
  Transmission Date: 20201103
  Serious: Yes (Other)
  Sender: FDA-Public Use
  Company Number: US-AKORN PHARMACEUTICALS-2020AKN00815

PATIENT
  Sex: Female
  Weight: 96.15 kg

DRUGS (1)
  1. MYORISAN [Suspect]
     Active Substance: ISOTRETINOIN
     Indication: ACNE
     Dosage: 40 MG, 2X/DAY
     Route: 048
     Dates: start: 20200407, end: 20200616

REACTIONS (3)
  - Mood altered [Unknown]
  - Depression [Unknown]
  - Suicidal ideation [Unknown]

NARRATIVE: CASE EVENT DATE: 2020
